FAERS Safety Report 11606966 (Version 1)
Quarter: 2015Q3

REPORT INFORMATION
  Report Type: Spontaneous
  Country: US (occurrence: US)
  Receive Date: 20150916
  Receipt Date: 20150916
  Transmission Date: 20151125
  Serious: No
  Sender: FDA-Public Use
  Company Number: US-ELI_LILLY_AND_COMPANY-US201401011200

PATIENT
  Sex: Male

DRUGS (4)
  1. LANTUS [Concomitant]
     Active Substance: INSULIN GLARGINE
     Dosage: UNK, EACH EVENING
  2. HUMALOG [Suspect]
     Active Substance: INSULIN LISPRO
     Dosage: 35 DF, QD
     Route: 065
     Dates: start: 201302
  3. HUMALOG [Suspect]
     Active Substance: INSULIN LISPRO
     Indication: TYPE 2 DIABETES MELLITUS
     Dosage: 35 DF, QD
     Route: 065
     Dates: start: 201302
  4. HUMALOG [Suspect]
     Active Substance: INSULIN LISPRO
     Dosage: 43 DF, EACH EVENING
     Route: 065
     Dates: start: 201302

REACTIONS (2)
  - Memory impairment [Unknown]
  - Blood glucose abnormal [Unknown]
